FAERS Safety Report 7805994-X (Version None)
Quarter: 2011Q4

REPORT INFORMATION
  Report Type: 
  Country: None (occurrence: None)
  Receive Date: 20111007
  Receipt Date: 20111007
  Transmission Date: 20120403
  Serious: Yes (Death)
  Sender: FDA-Public Use
  Company Number: None

PATIENT
  Age: 56 Year
  Sex: Male

DRUGS (1)
  1. TESTOPEL [Suspect]
     Indication: HYPOGONADISM
     Dosage: 10 PELLETS UNKNOWN SUBCUTANEOUS IMPLANTATION
     Route: 058
     Dates: start: 20110901, end: 20110101

REACTIONS (6)
  - HYPOTENSION [None]
  - SEPSIS [None]
  - TACHYCARDIA [None]
  - HYPERVISCOSITY SYNDROME [None]
  - HYPOVOLAEMIA [None]
  - TREATMENT FAILURE [None]
